FAERS Safety Report 12738825 (Version 1)
Quarter: 2016Q3

REPORT INFORMATION
  Report Type: Spontaneous
  Country: US (occurrence: US)
  Receive Date: 20160912
  Receipt Date: 20160912
  Transmission Date: 20161109
  Serious: No
  Sender: FDA-Public Use
  Company Number: US-PERRIGO-15US009494

PATIENT
  Age: 45 Year
  Sex: Female
  Weight: 58.5 kg

DRUGS (2)
  1. VALIUM [Concomitant]
     Active Substance: DIAZEPAM
     Indication: ANXIETY
     Dosage: 2 MG, PRN
     Route: 048
  2. KETOCONAZOLE. [Suspect]
     Active Substance: KETOCONAZOLE
     Indication: DANDRUFF
     Dosage: 1 SMALL APPLICATION, QD
     Route: 061
     Dates: start: 20150908, end: 20150911

REACTIONS (11)
  - Headache [Recovering/Resolving]
  - Nasal discomfort [Recovering/Resolving]
  - Application site pruritus [Recovering/Resolving]
  - Application site alopecia [Recovering/Resolving]
  - Application site warmth [Recovering/Resolving]
  - Application site erythema [Recovering/Resolving]
  - Application site pain [Recovering/Resolving]
  - Application site dryness [Recovering/Resolving]
  - Application site vesicles [Recovering/Resolving]
  - Off label use [Recovered/Resolved]
  - Application site exfoliation [Recovering/Resolving]

NARRATIVE: CASE EVENT DATE: 20150908
